FAERS Safety Report 11070733 (Version 2)
Quarter: 2015Q2

REPORT INFORMATION
  Report Type: Report from Study
  Country: CN (occurrence: CN)
  Receive Date: 20150427
  Receipt Date: 20150615
  Transmission Date: 20150821
  Serious: Yes (Other)
  Sender: FDA-Public Use
  Company Number: CN-BAXTER-2015BAX021557

PATIENT

DRUGS (2)
  1. 0.2% FLUCONAZOLE AND 0.9% SODIUM CHLORIDE INJECTION [Suspect]
     Active Substance: FLUCONAZOLE
     Indication: FUNGAEMIA
     Route: 042
  2. 0.2% FLUCONAZOLE AND 0.9% SODIUM CHLORIDE INJECTION [Suspect]
     Active Substance: FLUCONAZOLE
     Indication: NOSOCOMIAL INFECTION

REACTIONS (2)
  - Infection [Unknown]
  - Fungal infection [Unknown]
